FAERS Safety Report 9134866 (Version 1)
Quarter: 2013Q1

REPORT INFORMATION
  Report Type: Spontaneous
  Country: DE (occurrence: DE)
  Receive Date: 20130304
  Receipt Date: 20130304
  Transmission Date: 20140127
  Serious: Yes (Life-Threatening, Hospitalization, Other)
  Sender: FDA-Public Use
  Company Number: DE-JNJFOC-20130200346

PATIENT
  Sex: Male
  Weight: 139 kg

DRUGS (10)
  1. XARELTO [Suspect]
     Indication: CEREBROVASCULAR ACCIDENT PROPHYLAXIS
     Route: 048
     Dates: start: 20120919, end: 201211
  2. XARELTO [Suspect]
     Indication: ATRIAL FIBRILLATION
     Route: 048
     Dates: start: 20120919, end: 201211
  3. SAB SIMPLEX [Concomitant]
     Route: 065
  4. AMLODIPINE [Concomitant]
     Route: 065
  5. BISOPROLOL [Concomitant]
     Route: 065
  6. LISINOPRIL [Concomitant]
     Route: 065
  7. ESOMEPRAZOLE [Concomitant]
     Route: 065
  8. ACC [Concomitant]
     Route: 065
  9. SPIRIVA [Concomitant]
     Dosage: 1 PUFF
     Route: 065
  10. VITAMIN C [Concomitant]
     Route: 065

REACTIONS (4)
  - Cerebral haemorrhage [Recovered/Resolved with Sequelae]
  - Basal ganglia haemorrhage [Recovered/Resolved with Sequelae]
  - Hemiparesis [Recovered/Resolved with Sequelae]
  - Dysarthria [Recovered/Resolved with Sequelae]
